FAERS Safety Report 9208396 (Version 1)
Quarter: 2013Q2

REPORT INFORMATION
  Report Type: Spontaneous
  Country: US (occurrence: US)
  Receive Date: 20130404
  Receipt Date: 20130404
  Transmission Date: 20140414
  Serious: No
  Sender: FDA-Public Use
  Company Number: US-BIOGENIDEC-2013BI020740

PATIENT
  Sex: Female

DRUGS (4)
  1. AVONEX [Suspect]
     Indication: MULTIPLE SCLEROSIS
     Route: 030
     Dates: start: 20110526
  2. AMPYRA [Concomitant]
     Indication: MULTIPLE SCLEROSIS
     Dates: start: 2011
  3. IBUPROFEN [Concomitant]
     Indication: PREMEDICATION
  4. VALIUM [Concomitant]
     Indication: PREMEDICATION

REACTIONS (2)
  - Poor quality drug administered [Recovered/Resolved]
  - Influenza like illness [Recovered/Resolved]
